FAERS Safety Report 19887885 (Version 1)
Quarter: 2021Q3

REPORT INFORMATION
  Report Type: Spontaneous
  Country: US (occurrence: US)
  Receive Date: 20210927
  Receipt Date: 20210927
  Transmission Date: 20211014
  Serious: No
  Sender: FDA-Public Use
  Company Number: None

PATIENT
  Age: 74 Year
  Sex: Male

DRUGS (1)
  1. VALACYCLOVIR (VALACYCLOVIR HCL 500MG TAB) [Suspect]
     Active Substance: VALACYCLOVIR HYDROCHLORIDE
     Dates: start: 20210916

REACTIONS (4)
  - Prescribed overdose [None]
  - Mental status changes [None]
  - Dialysis [None]
  - Toxicity to various agents [None]

NARRATIVE: CASE EVENT DATE: 20210918
